FAERS Safety Report 6228573-7 (Version None)
Quarter: 2009Q2

REPORT INFORMATION
  Report Type: 
  Country: None (occurrence: None)
  Receive Date: 20090612
  Receipt Date: 20090610
  Transmission Date: 20091009
  Serious: Yes (Death)
  Sender: FDA-Public Use
  Company Number: JP-AVENTIS-200911553JP

PATIENT
  Age: 38 Year
  Sex: Female

DRUGS (1)
  1. RILUTEK [Suspect]
     Indication: AMYOTROPHIC LATERAL SCLEROSIS

REACTIONS (5)
  - AMYOTROPHIC LATERAL SCLEROSIS [None]
  - CONDITION AGGRAVATED [None]
  - DISEASE PROGRESSION [None]
  - DRUG EXPOSURE DURING PREGNANCY [None]
  - PREGNANCY [None]
